FAERS Safety Report 5125006-9 (Version None)
Quarter: 2006Q4

REPORT INFORMATION
  Report Type: 
  Country: None (occurrence: None)
  Receive Date: 20061011
  Receipt Date: 20061005
  Transmission Date: 20070319
  Serious: Yes (Other)
  Sender: FDA-Public Use
  Company Number: JP-JPN-A200604064

PATIENT
  Age: 38 Year
  Sex: Female

DRUGS (1)
  1. PAXIL [Suspect]
     Dosage: 40MG PER DAY
     Route: 048

REACTIONS (1)
  - EOSINOPHILIC PNEUMONIA [None]
